FAERS Safety Report 19653099 (Version 1)
Quarter: 2021Q3

REPORT INFORMATION
  Report Type: Report from Study
  Country: EG (occurrence: EG)
  Receive Date: 20210803
  Receipt Date: 20210803
  Transmission Date: 20211014
  Serious: Yes (Death, Other)
  Sender: FDA-Public Use
  Company Number: EG-SEATTLE GENETICS-2020SGN04920

PATIENT
  Age: 25 Year
  Sex: Male

DRUGS (1)
  1. BRENTUXIMAB VEDOTIN [Suspect]
     Active Substance: BRENTUXIMAB VEDOTIN
     Indication: HODGKIN^S DISEASE REFRACTORY
     Dosage: UNK
     Route: 042
     Dates: start: 20200718

REACTIONS (6)
  - Inflammation [Unknown]
  - Oedema peripheral [Unknown]
  - Respiratory failure [Fatal]
  - White blood cell count decreased [Unknown]
  - Abdominal pain upper [Unknown]
  - Viral infection [Unknown]

NARRATIVE: CASE EVENT DATE: 20210707
